FAERS Safety Report 5004717-X (Version None)
Quarter: 2006Q1

REPORT INFORMATION
  Report Type: 
  Country: None (occurrence: None)
  Receive Date: 20060321
  Receipt Date: 20060118
  Transmission Date: 20060701
  Serious: No
  Sender: FDA-Public Use
  Company Number: 2006US000177

PATIENT
  Age: 80 Year
  Sex: Male

DRUGS (2)
  1. VESICARE [Suspect]
     Indication: POLLAKIURIA
     Dosage: ORAL
     Route: 048
     Dates: start: 20060112
  2. ANTIBIOTICS [Concomitant]

REACTIONS (1)
  - HAEMATURIA [None]
